FAERS Safety Report 9506405 (Version 2)
Quarter: 2014Q1

REPORT INFORMATION
  Report Type: Spontaneous
  Country: US (occurrence: None)
  Receive Date: 20130301
  Receipt Date: 20140304
  Transmission Date: 20141002
  Serious: Yes (Hospitalization, Other)
  Sender: FDA-Public Use
  Company Number: RB-46814-2012

PATIENT
  Sex: Female

DRUGS (1)
  1. SUBOXONE 8 MG [Suspect]
     Indication: ACCIDENTAL EXPOSURE TO PRODUCT
     Dosage: 4 MG ONE TIME ORAL
     Route: 048
     Dates: start: 2009, end: 2009

REACTIONS (1)
  - Accidental exposure to product by child [None]
